FAERS Safety Report 5378824-6 (Version None)
Quarter: 2007Q3

REPORT INFORMATION
  Report Type: 
  Country: None (occurrence: None)
  Receive Date: 20070705
  Receipt Date: 20070622
  Transmission Date: 20080115
  Serious: Yes (Other)
  Sender: FDA-Public Use
  Company Number: FR-JNJFOC-20070606051

PATIENT
  Age: 73 Year
  Sex: Female
  Weight: 80 kg

DRUGS (12)
  1. REOPRO [Suspect]
     Indication: STENT PLACEMENT
     Route: 042
  2. INDAPAMIDE [Concomitant]
  3. TENORDATE [Concomitant]
  4. KETOPROFEN [Concomitant]
  5. DOLIPRANE [Concomitant]
  6. OGAST [Concomitant]
  7. PLAVIX [Concomitant]
  8. PLAVIX [Concomitant]
     Dosage: 4 TABLETS
  9. LOVENOX [Concomitant]
  10. LOVENOX [Concomitant]
  11. ASPIRIN [Concomitant]
  12. ASPIRIN [Concomitant]

REACTIONS (6)
  - ANTIBODY TEST [None]
  - DRUG SPECIFIC ANTIBODY PRESENT [None]
  - PERICARDIAL EFFUSION [None]
  - RASH PRURITIC [None]
  - THROMBOCYTOPENIA [None]
  - VESSEL PUNCTURE SITE HAEMATOMA [None]
